FAERS Safety Report 5763844-X (Version None)
Quarter: 2008Q2

REPORT INFORMATION
  Report Type: 
  Country: None (occurrence: None)
  Receive Date: 20080606
  Receipt Date: 20080606
  Transmission Date: 20081010
  Serious: Yes (Other)
  Sender: FDA-Public Use
  Company Number: None

PATIENT
  Age: 49 Year
  Sex: Female
  Weight: 65.7716 kg

DRUGS (2)
  1. KENALOG [Suspect]
     Indication: MULTIPLE ALLERGIES
     Dates: start: 20050401, end: 20060401
  2. KENALOG [Suspect]
     Indication: MULTIPLE ALLERGIES
     Dates: start: 20070401, end: 20080401

REACTIONS (1)
  - SKIN DISORDER [None]
